FAERS Safety Report 7030677-6 (Version None)
Quarter: 2010Q4

REPORT INFORMATION
  Report Type: 
  Country: None (occurrence: None)
  Receive Date: 20101006
  Receipt Date: 20100928
  Transmission Date: 20110411
  Serious: Yes (Death)
  Sender: FDA-Public Use
  Company Number: PE-PFIZER INC-2010123602

PATIENT
  Age: 96 Year
  Sex: Female

DRUGS (1)
  1. XANAX XR [Suspect]
     Indication: PANIC DISORDER
     Dosage: 0.5 MG, 1X/DAY
     Route: 048
     Dates: start: 20081024

REACTIONS (1)
  - DEATH [None]
